FAERS Safety Report 4829882-6 (Version None)
Quarter: 2005Q4

REPORT INFORMATION
  Report Type: 
  Country: None (occurrence: None)
  Receive Date: 20051117
  Receipt Date: 20050822
  Transmission Date: 20060501
  Serious: Yes (Hospitalization)
  Sender: FDA-Public Use
  Company Number: JP-ABBOTT-05P-087-0309235-00

PATIENT
  Sex: Female
  Weight: 46 kg

DRUGS (7)
  1. KLARICID [Suspect]
     Indication: NASOPHARYNGITIS
     Route: 048
     Dates: start: 20050618, end: 20050618
  2. LOXOPROFEN SODIUM [Suspect]
     Indication: UPPER RESPIRATORY TRACT INFLAMMATION
     Route: 048
     Dates: start: 20050618, end: 20050622
  3. CEFCAPENE PIVOXIL HYDROCHLORIDE [Suspect]
     Indication: UPPER RESPIRATORY TRACT INFLAMMATION
     Route: 048
     Dates: start: 20050618, end: 20050622
  4. TEPRENONE [Suspect]
     Indication: UPPER RESPIRATORY TRACT INFLAMMATION
     Route: 048
     Dates: start: 20050618, end: 20050622
  5. CLOPERASTINE [Suspect]
     Indication: DRUG USE FOR UNKNOWN INDICATION
     Route: 048
     Dates: start: 20050618, end: 20050622
  6. PABRON [Suspect]
     Indication: DRUG USE FOR UNKNOWN INDICATION
     Route: 048
     Dates: start: 20050618, end: 20050618
  7. BIFIDOBACTERIUM [Suspect]
     Indication: DRUG USE FOR UNKNOWN INDICATION
     Route: 048

REACTIONS (3)
  - ABDOMINAL PAIN [None]
  - HEPATITIS ACUTE [None]
  - LIVER DISORDER [None]
